FAERS Safety Report 21568904 (Version 1)
Quarter: 2022Q4

REPORT INFORMATION
  Report Type: Spontaneous
  Country: CN (occurrence: CN)
  Receive Date: 20221108
  Receipt Date: 20221108
  Transmission Date: 20230113
  Serious: Yes (Other)
  Sender: FDA-Public Use
  Company Number: CN-SUN PHARMACEUTICAL INDUSTRIES LTD-2022R1-362374

PATIENT
  Sex: Male
  Weight: 80 kg

DRUGS (2)
  1. AZITHROMYCIN [Suspect]
     Active Substance: AZITHROMYCIN
     Indication: Psoriasis
     Dosage: 0.1 GRAM, DAILY
     Route: 048
  2. ADALIMUMAB [Concomitant]
     Active Substance: ADALIMUMAB
     Indication: Psoriasis
     Dosage: UNK 80 MG ON THE FIRST DAY, FOLLOWED BY 40 MG EVERY 2 WEEKS
     Route: 058

REACTIONS (1)
  - Condition aggravated [Unknown]
